FAERS Safety Report 25857889 (Version 1)
Quarter: 2025Q3

REPORT INFORMATION
  Report Type: Spontaneous
  Country: IN (occurrence: IN)
  Receive Date: 20250929
  Receipt Date: 20250929
  Transmission Date: 20251021
  Serious: Yes (Disabling, Other)
  Sender: ALKEM
  Company Number: None

PATIENT
  Sex: Male

DRUGS (5)
  1. TACROLIMUS [Suspect]
     Active Substance: TACROLIMUS
     Indication: Vernal keratoconjunctivitis
     Dosage: UNK, BID (EYE OINTMENT)
     Route: 061
  2. TACROLIMUS [Suspect]
     Active Substance: TACROLIMUS
     Indication: Glaucoma
  3. BENZALKONIUM CHLORIDE [Suspect]
     Active Substance: BENZALKONIUM CHLORIDE
     Indication: Product used for unknown indication
  4. Brinzolamide, Brimonidine [Concomitant]
     Indication: Vernal keratoconjunctivitis
     Dosage: 1 DOSAGE FORM, BID
  5. Brinzolamide, Brimonidine [Concomitant]
     Indication: Glaucoma

REACTIONS (7)
  - Keratic precipitates [Recovered/Resolved]
  - Cataract subcapsular [Recovered/Resolved]
  - Reaction to excipient [Recovered/Resolved]
  - Keratitis [Recovered/Resolved]
  - Keratouveitis [Recovered/Resolved]
  - Microsporidia infection [Recovered/Resolved]
  - Infection [Recovered/Resolved]
